FAERS Safety Report 18131369 (Version 2)
Quarter: 2021Q3

REPORT INFORMATION
  Report Type: Spontaneous
  Country: US (occurrence: US)
  Receive Date: 20200810
  Receipt Date: 20210804
  Transmission Date: 20211014
  Serious: No
  Sender: FDA-Public Use
  Company Number: US-UPSHER-SMITH LABORATORIES, LLC-2020USL00317

PATIENT
  Sex: Female
  Weight: 79.37 kg

DRUGS (2)
  1. LOPRESSOR [Concomitant]
     Active Substance: METOPROLOL TARTRATE
  2. CHLORPROMAZINE HYDROCHLORIDE. [Suspect]
     Active Substance: CHLORPROMAZINE HYDROCHLORIDE
     Indication: INSOMNIA
     Dosage: 100 MG, 1X/DAY AT BEDTIME
     Route: 048

REACTIONS (6)
  - Pruritus [Not Recovered/Not Resolved]
  - Somnolence [Unknown]
  - Skin burning sensation [Not Recovered/Not Resolved]
  - Initial insomnia [Not Recovered/Not Resolved]
  - Discomfort [Not Recovered/Not Resolved]
  - Eczema [Not Recovered/Not Resolved]

NARRATIVE: CASE EVENT DATE: 2020
